FAERS Safety Report 10141701 (Version 1)
Quarter: 2014Q2

REPORT INFORMATION
  Report Type: Spontaneous
  Country: TW (occurrence: TW)
  Receive Date: 20140429
  Receipt Date: 20140429
  Transmission Date: 20141212
  Serious: Yes (Death)
  Sender: FDA-Public Use
  Company Number: TW-ASTELLAS-2014US004386

PATIENT
  Age: 62 Year
  Sex: Female

DRUGS (2)
  1. AMBISOME [Suspect]
     Indication: CANDIDA INFECTION
     Dosage: UNK, UNKNOWN FREQ.
     Route: 065
  2. WARFARIN [Concomitant]
     Indication: PRODUCT USED FOR UNKNOWN INDICATION
     Dosage: UNK UNK, UNKNOWN FREQ.
     Route: 065

REACTIONS (1)
  - Drug ineffective [Fatal]
